FAERS Safety Report 12170158 (Version 1)
Quarter: 2016Q1

REPORT INFORMATION
  Report Type: Spontaneous
  Country: US (occurrence: US)
  Receive Date: 20160311
  Receipt Date: 20160311
  Transmission Date: 20160526
  Serious: No
  Sender: FDA-Public Use
  Company Number: US-ALEMBIC PHARMACUETICALS LIMITED-2015SCAL000917

PATIENT

DRUGS (1)
  1. METOPROLOL TARTRATE. [Suspect]
     Active Substance: METOPROLOL TARTRATE
     Indication: EXTRASYSTOLES
     Dosage: 0.5 DF, BID
     Dates: start: 201507

REACTIONS (2)
  - Off label use [Unknown]
  - Skin discolouration [Not Recovered/Not Resolved]
